FAERS Safety Report 24396084 (Version 1)
Quarter: 2024Q4

REPORT INFORMATION
  Report Type: Spontaneous
  Country: MX (occurrence: MX)
  Receive Date: 20241004
  Receipt Date: 20241004
  Transmission Date: 20250115
  Serious: Yes (Hospitalization)
  Sender: NOVARTIS
  Company Number: MX-002147023-NVSC2024MX194363

PATIENT
  Age: 52 Year
  Sex: Female

DRUGS (8)
  1. DEFERASIROX [Suspect]
     Active Substance: DEFERASIROX
     Indication: Haemochromatosis
     Dosage: 500 MG, QD
     Route: 065
  2. DEFERASIROX [Suspect]
     Active Substance: DEFERASIROX
     Dosage: UNK (SECOND DOSE)
     Route: 065
  3. DEFERASIROX [Suspect]
     Active Substance: DEFERASIROX
     Dosage: 7.5 MG, ON FIRST DAY OF DESENSITIZATION PROTOCOL
     Route: 065
  4. DEFERASIROX [Suspect]
     Active Substance: DEFERASIROX
     Dosage: 30 MG, ON SECOND DAY OF DESENSITIZATION PROTOCOL
     Route: 065
  5. DEFERASIROX [Suspect]
     Active Substance: DEFERASIROX
     Dosage: 450 MG, ON THIRD DAY OF DESENSITIZATION PROTOCOL
     Route: 065
  6. DEFERASIROX [Suspect]
     Active Substance: DEFERASIROX
     Dosage: 750 MG
     Route: 065
  7. DEFERASIROX [Suspect]
     Active Substance: DEFERASIROX
     Dosage: 500 MG, QD
     Route: 065
  8. DEFERASIROX [Suspect]
     Active Substance: DEFERASIROX
     Dosage: 250 MG, QD
     Route: 065

REACTIONS (7)
  - Urticaria [Unknown]
  - Laryngeal oedema [Unknown]
  - Erythema [Unknown]
  - Face oedema [Unknown]
  - Pruritus [Unknown]
  - Hepatic enzyme increased [Recovered/Resolved]
  - Product use in unapproved indication [Unknown]
